FAERS Safety Report 17109180 (Version 1)
Quarter: 2019Q4

REPORT INFORMATION
  Report Type: Spontaneous
  Country: SE (occurrence: SE)
  Receive Date: 20191204
  Receipt Date: 20191204
  Transmission Date: 20200122
  Serious: Yes (Hospitalization)
  Sender: FDA-Public Use
  Company Number: SE-TEVA-2019-SE-1145952

PATIENT
  Age: 22 Year
  Sex: Female

DRUGS (2)
  1. LERGIGAN (PROMETHAZINE HYDROCHLORIDE) [Suspect]
     Active Substance: PROMETHAZINE HYDROCHLORIDE
     Dosage: 3750MG
     Route: 048
     Dates: start: 20180708, end: 20180708
  2. ENALAPRIL [Suspect]
     Active Substance: ENALAPRIL
     Dosage: 1750MG
     Route: 048
     Dates: start: 20180708, end: 20180708

REACTIONS (5)
  - Intentional overdose [Unknown]
  - Dizziness [Unknown]
  - Vomiting [Unknown]
  - Fatigue [Unknown]
  - Intentional self-injury [Unknown]

NARRATIVE: CASE EVENT DATE: 20180708
